FAERS Safety Report 17651312 (Version 1)
Quarter: 2020Q2

REPORT INFORMATION
  Report Type: Spontaneous
  Country: US (occurrence: US)
  Receive Date: 20200409
  Receipt Date: 20200409
  Transmission Date: 20200713
  Serious: Yes (Other)
  Sender: FDA-Public Use
  Company Number: US-MYLANLABS-2020M1035319

PATIENT
  Age: 41 Year
  Sex: Male

DRUGS (1)
  1. TESTOSTERONE. [Suspect]
     Active Substance: TESTOSTERONE
     Indication: SUPPLEMENTATION THERAPY
     Dosage: UNK
     Route: 042

REACTIONS (5)
  - Drug abuse [Recovered/Resolved]
  - Myocarditis [Recovered/Resolved]
  - Atrioventricular block first degree [Recovering/Resolving]
  - Atrioventricular block complete [Recovered/Resolved]
  - Bundle branch block right [Recovering/Resolving]
